FAERS Safety Report 7245487-4 (Version None)
Quarter: 2011Q1

REPORT INFORMATION
  Report Type: 
  Country: None (occurrence: None)
  Receive Date: 20110118
  Receipt Date: 20110104
  Transmission Date: 20110831
  Serious: Yes (Hospitalization)
  Sender: FDA-Public Use
  Company Number: 795518

PATIENT
  Age: 60 Year
  Sex: Male

DRUGS (4)
  1. OXALIPLATIN [Suspect]
     Indication: RECTAL CANCER
     Dosage: 100 MG/M2 MILLIGRAM(S), SQ, METER
     Route: 013
  2. CAPECITABINE [Concomitant]
  3. YTTRIUM (90Y) [Suspect]
     Indication: RECTAL CANCER
     Dosage: 1GBQ GIGABECQUEREL (S)
  4. CETUXIMAB [Concomitant]

REACTIONS (2)
  - POST PROCEDURAL HAEMORRHAGE [None]
  - PORTAL HYPERTENSION [None]
